FAERS Safety Report 7864739-8 (Version None)
Quarter: 2011Q4

REPORT INFORMATION
  Report Type: 
  Country: None (occurrence: None)
  Receive Date: 20111028
  Receipt Date: 20111018
  Transmission Date: 20120403
  Serious: Yes (Death)
  Sender: FDA-Public Use
  Company Number: AU-ELI_LILLY_AND_COMPANY-AU201005000965

PATIENT
  Age: 26 Year
  Sex: Male

DRUGS (4)
  1. FLUOXETINE HCL [Suspect]
     Dosage: UNK, UNKNOWN
  2. OXYCODONE HCL [Concomitant]
     Dosage: UNK, UNKNOWN
  3. DIAZEPAM [Concomitant]
     Dosage: UNK, UNKNOWN
  4. TRAMADOL HCL [Concomitant]
     Dosage: UNK, UNKNOWN

REACTIONS (1)
  - TOXICITY TO VARIOUS AGENTS [None]
